FAERS Safety Report 6155238-2 (Version None)
Quarter: 2009Q2

REPORT INFORMATION
  Report Type: 
  Country: None (occurrence: None)
  Receive Date: 20090415
  Receipt Date: 20090407
  Transmission Date: 20091009
  Serious: Yes (Other)
  Sender: FDA-Public Use
  Company Number: PHHY2009BR13258

PATIENT
  Sex: Male
  Weight: 62 kg

DRUGS (4)
  1. FORASEQ [Suspect]
     Indication: ASTHMA
  2. CAPTOPRIL [Concomitant]
     Indication: BLOOD PRESSURE
     Dosage: 1 DF, BID
     Route: 048
  3. HYDROCHLOROTHIAZIDE [Concomitant]
     Indication: BLOOD POTASSIUM INCREASED
     Dosage: 1 TABLET / DAY
  4. PURAN T4 [Concomitant]
     Indication: THYROID DISORDER
     Dosage: 1 TABLET/DAY
     Route: 048

REACTIONS (3)
  - ABASIA [None]
  - ARTHRALGIA [None]
  - MUSCULOSKELETAL PAIN [None]
